FAERS Safety Report 15604329 (Version 1)
Quarter: 2018Q4

REPORT INFORMATION
  Report Type: Spontaneous
  Country: FR (occurrence: FR)
  Receive Date: 20181110
  Receipt Date: 20181110
  Transmission Date: 20190205
  Serious: Yes (Life-Threatening, Other)
  Sender: FDA-Public Use
  Company Number: FR-ACCORD-091309

PATIENT
  Age: 9 Year
  Sex: Female
  Weight: 31.4 kg

DRUGS (8)
  1. CYTARABINE/CYTARABINE HYDROCHLORIDE/CYTARABINE OCFOSFATE [Suspect]
     Active Substance: CYTARABINE
     Indication: ACUTE LYMPHOCYTIC LEUKAEMIA
     Dosage: CYCLICAL
     Route: 042
     Dates: start: 20170829, end: 20171007
  2. MERCAPTOPURINE/MERCAPTOPURINE ANHYDROUS [Suspect]
     Active Substance: MERCAPTOPURINE
     Indication: ACUTE LYMPHOCYTIC LEUKAEMIA
     Dosage: CYCLICAL
     Route: 048
     Dates: start: 20170827, end: 20171007
  3. HYDROCORTISONE. [Suspect]
     Active Substance: HYDROCORTISONE
     Indication: ACUTE LYMPHOCYTIC LEUKAEMIA
     Dosage: CYCLICAL
     Route: 037
     Dates: start: 20170721, end: 20170927
  4. ENDOXAN [Suspect]
     Active Substance: CYCLOPHOSPHAMIDE
     Indication: ACUTE LYMPHOCYTIC LEUKAEMIA
     Dosage: STRENGTH: 1000 MG
     Route: 042
     Dates: start: 20170827, end: 20170925
  5. METHOTREXATE. [Suspect]
     Active Substance: METHOTREXATE
     Indication: ACUTE LYMPHOCYTIC LEUKAEMIA
     Dosage: CYCLICAL
     Route: 037
     Dates: start: 20170721, end: 20170927
  6. ONCASPAR [Suspect]
     Active Substance: PEGASPARGASE
     Indication: ACUTE LYMPHOCYTIC LEUKAEMIA
     Dosage: STRENGTH: 750 UI/ML?CYCLICAL
     Route: 042
     Dates: start: 20170720, end: 20171009
  7. VINCRISTINE [Suspect]
     Active Substance: VINCRISTINE
     Indication: ACUTE LYMPHOCYTIC LEUKAEMIA
     Dosage: CYCLICAL
     Route: 042
     Dates: start: 20170716, end: 20171016
  8. CYCLOPHOSPHAMIDE/CYCLOPHOSPHAMIDE MONOHYDRATE [Suspect]
     Active Substance: CYCLOPHOSPHAMIDE
     Indication: ACUTE LYMPHOCYTIC LEUKAEMIA
     Dosage: CYCLICAL
     Route: 042
     Dates: start: 20170827, end: 20170925

REACTIONS (3)
  - Hypoalbuminaemia [Recovered/Resolved]
  - Pericarditis [Recovered/Resolved]
  - Pleural effusion [Recovered/Resolved]

NARRATIVE: CASE EVENT DATE: 20171028
